FAERS Safety Report 7957440-3 (Version None)
Quarter: 2011Q4

REPORT INFORMATION
  Report Type: 
  Country: None (occurrence: None)
  Receive Date: 20111205
  Receipt Date: 20111124
  Transmission Date: 20120403
  Serious: Yes (Death)
  Sender: FDA-Public Use
  Company Number: JP-PFIZER INC-2011294175

PATIENT
  Age: 75 Year
  Sex: Male

DRUGS (4)
  1. ERBITUX [Suspect]
     Indication: LARGE INTESTINE CARCINOMA
     Dosage: 400 MG/M2, UNK
     Route: 041
     Dates: start: 20111012, end: 20111012
  2. CAMPTOSAR [Suspect]
     Indication: LARGE INTESTINE CARCINOMA
     Dosage: 150 MG/M2, UNK
     Route: 041
     Dates: start: 20111012, end: 20111102
  3. TS-1 [Suspect]
     Indication: LARGE INTESTINE CARCINOMA
     Dosage: 65 MG, 2X/DAY
     Route: 048
     Dates: start: 20111012, end: 20111116
  4. ERBITUX [Suspect]
     Dosage: 250 MG/M2, UNK
     Route: 041
     Dates: end: 20111116

REACTIONS (1)
  - LOSS OF CONSCIOUSNESS [None]
